FAERS Safety Report 24006325 (Version 1)
Quarter: 2024Q2

REPORT INFORMATION
  Report Type: Report from Study
  Country: CA (occurrence: CA)
  Receive Date: 20240624
  Receipt Date: 20240624
  Transmission Date: 20240716
  Serious: Yes (Other)
  Sender: FDA-Public Use
  Company Number: CA-HLS-202401560

PATIENT
  Sex: Male

DRUGS (6)
  1. CLOZARIL [Suspect]
     Active Substance: CLOZAPINE
     Indication: Product used for unknown indication
     Route: 048
     Dates: start: 20240531
  2. CLOZARIL [Suspect]
     Active Substance: CLOZAPINE
     Indication: Product used for unknown indication
     Route: 065
     Dates: start: 20240613
  3. ATIVAN [Concomitant]
     Active Substance: LORAZEPAM
     Indication: Akathisia
     Dosage: RECOMMENDED FOR SHORT DURATION.
     Route: 065
  4. ATIVAN [Concomitant]
     Active Substance: LORAZEPAM
     Indication: Insomnia
     Dosage: RECOMMENDED FOR SHORT DURATION.
     Route: 065
  5. HALDOL [Concomitant]
     Active Substance: HALOPERIDOL
     Indication: Product used for unknown indication
     Route: 065
  6. INVEGA [Concomitant]
     Active Substance: PALIPERIDONE
     Indication: Product used for unknown indication
     Dosage: 6MG QAM AND 3MG QHS
     Route: 065

REACTIONS (5)
  - Akathisia [Unknown]
  - Insomnia [Unknown]
  - Orthostatic hypotension [Recovered/Resolved]
  - Restlessness [Unknown]
  - Rebound tachycardia [Not Recovered/Not Resolved]
